FAERS Safety Report 4655229-4 (Version None)
Quarter: 2005Q2

REPORT INFORMATION
  Report Type: 
  Country: None (occurrence: None)
  Receive Date: 20050506
  Receipt Date: 20050425
  Transmission Date: 20051028
  Serious: Yes (Disabling, Other)
  Sender: FDA-Public Use
  Company Number: GB-GLAXOSMITHKLINE-B0379160A

PATIENT
  Age: 15 Year
  Sex: Female
  Weight: 45 kg

DRUGS (3)
  1. SALBUTAMOL [Suspect]
     Indication: ASTHMA
     Route: 065
     Dates: start: 20050318, end: 20050321
  2. TRIMETHOPRIM [Concomitant]
     Indication: URINARY TRACT INFECTION
     Dosage: 20MG PER DAY
     Route: 048
     Dates: start: 20050128, end: 20050202
  3. CERAZETTE [Concomitant]
     Indication: CONTRACEPTION
     Dosage: 75MCG PER DAY
     Route: 048
     Dates: start: 20050204

REACTIONS (4)
  - CARDIAC FAILURE [None]
  - CONVULSION [None]
  - LOSS OF CONSCIOUSNESS [None]
  - SYNCOPE [None]
